FAERS Safety Report 12161964 (Version 2)
Quarter: 2016Q2

REPORT INFORMATION
  Report Type: Spontaneous
  Country: US (occurrence: US)
  Receive Date: 20160309
  Receipt Date: 20160421
  Transmission Date: 20160815
  Serious: No
  Sender: FDA-Public Use
  Company Number: US-009507513-1603USA004114

PATIENT
  Sex: Female

DRUGS (1)
  1. NEXPLANON [Suspect]
     Active Substance: ETONOGESTREL
     Indication: CONTRACEPTION
     Route: 059

REACTIONS (8)
  - Device intolerance [Unknown]
  - Abdominal pain [Unknown]
  - Headache [Unknown]
  - Adverse event [Unknown]
  - Acne [Unknown]
  - Haemorrhage [Unknown]
  - Affect lability [Unknown]
  - Weight increased [Unknown]
